FAERS Safety Report 6028650-X (Version None)
Quarter: 2009Q1

REPORT INFORMATION
  Report Type: 
  Country: None (occurrence: None)
  Receive Date: 20090105
  Receipt Date: 20090105
  Transmission Date: 20090719
  Serious: Yes (Other)
  Sender: FDA-Public Use
  Company Number: None

PATIENT
  Age: 23 Year
  Sex: Female
  Weight: 79.1 kg

DRUGS (3)
  1. RETROVIR [Suspect]
     Dosage: 300 MG BID ORAL
     Route: 048
     Dates: start: 20080814, end: 20081204
  2. EPIVIR [Suspect]
     Dosage: 150 MG BID ORAL
     Route: 048
     Dates: start: 20051124, end: 20081204
  3. KALETRA [Suspect]
     Dosage: 400/100 MG BID ORAL
     Route: 048
     Dates: start: 20051124, end: 20081204

REACTIONS (3)
  - ABORTION SPONTANEOUS [None]
  - DRUG EXPOSURE DURING PREGNANCY [None]
  - PREGNANCY [None]
